FAERS Safety Report 8091407-2 (Version None)
Quarter: 2012Q1

REPORT INFORMATION
  Report Type: 
  Country: None (occurrence: None)
  Receive Date: 20120129
  Receipt Date: 20111229
  Transmission Date: 20120608
  Serious: No
  Sender: FDA-Public Use
  Company Number: US-ABBOTT-10P-163-0653913-00

PATIENT
  Age: 53 Year
  Sex: Male

DRUGS (5)
  1. HUMIRA [Suspect]
     Indication: RHEUMATOID ARTHRITIS
     Route: 050
     Dates: start: 20040101, end: 20100101
  2. METHOTREXATE [Concomitant]
     Indication: RHEUMATOID ARTHRITIS
     Dosage: WEEKLY
     Route: 048
  3. HUMIRA [Suspect]
     Route: 050
     Dates: start: 20100101
  4. LISINOPRIL [Concomitant]
     Indication: PRODUCT USED FOR UNKNOWN INDICATION
  5. FOLIC ACID [Concomitant]
     Indication: PRODUCT USED FOR UNKNOWN INDICATION

REACTIONS (6)
  - DRUG EFFECT DECREASED [None]
  - ASTHENIA [None]
  - PARAESTHESIA [None]
  - FEELING COLD [None]
  - WRONG TECHNIQUE IN DRUG USAGE PROCESS [None]
  - HYPOAESTHESIA [None]
